FAERS Safety Report 10256433 (Version 2)
Quarter: 2014Q2

REPORT INFORMATION
  Report Type: Spontaneous
  Country: US (occurrence: US)
  Receive Date: 20140624
  Receipt Date: 20140624
  Transmission Date: 20141212
  Serious: No
  Sender: FDA-Public Use
  Company Number: US-ZOGENIX, INC.-2012ZX000187

PATIENT
  Age: 47 Year
  Sex: Female
  Weight: 86.26 kg

DRUGS (13)
  1. SUMAVEL DOSEPRO [Suspect]
     Indication: MIGRAINE
     Dates: start: 201205, end: 201205
  2. SUMAVEL DOSEPRO [Suspect]
  3. ASA [Concomitant]
     Indication: PRODUCT USED FOR UNKNOWN INDICATION
     Route: 048
  4. CYMBALTA [Concomitant]
     Indication: DEPRESSION
     Route: 048
  5. CELEBREX [Concomitant]
     Indication: PRODUCT USED FOR UNKNOWN INDICATION
     Route: 048
  6. ZOLOFT [Concomitant]
     Indication: PRODUCT USED FOR UNKNOWN INDICATION
  7. PROPRANOLOL [Concomitant]
     Indication: PRODUCT USED FOR UNKNOWN INDICATION
  8. RELPAX [Concomitant]
     Indication: PRODUCT USED FOR UNKNOWN INDICATION
  9. ALPRAZOLAM [Concomitant]
     Indication: ANXIETY
     Route: 048
  10. LAMICTAL [Concomitant]
     Indication: PRODUCT USED FOR UNKNOWN INDICATION
  11. BIRTH CONTROL [Concomitant]
     Indication: PRODUCT USED FOR UNKNOWN INDICATION
  12. SYNTHROID [Concomitant]
     Indication: THYROID DISORDER
     Route: 048
  13. SIMVASTATIN [Concomitant]
     Indication: BLOOD CHOLESTEROL
     Route: 048

REACTIONS (4)
  - Injection site pain [Recovered/Resolved]
  - Chest discomfort [Recovered/Resolved]
  - Injection site haemorrhage [Recovered/Resolved]
  - Injection site swelling [Recovered/Resolved]
